FAERS Safety Report 18926538 (Version 2)
Quarter: 2021Q1

REPORT INFORMATION
  Report Type: Spontaneous
  Country: US (occurrence: US)
  Receive Date: 20210223
  Receipt Date: 20210307
  Transmission Date: 20210420
  Serious: No
  Sender: FDA-Public Use
  Company Number: US-SA-2021SA060247

PATIENT
  Sex: Female
  Weight: 88.44 kg

DRUGS (27)
  1. BOTOX [Concomitant]
     Active Substance: ONABOTULINUMTOXINA
  2. EPINEPHRINE. [Concomitant]
     Active Substance: EPINEPHRINE
  3. REMODULIN [Concomitant]
     Active Substance: TREPROSTINIL
  4. ALLEGRA ALLERGY [Concomitant]
     Active Substance: FEXOFENADINE HYDROCHLORIDE
  5. OXYGEN. [Concomitant]
     Active Substance: OXYGEN
  6. HYDROCHLOROTHIAZIDE. [Concomitant]
     Active Substance: HYDROCHLOROTHIAZIDE
  7. NEURONTIN [Concomitant]
     Active Substance: GABAPENTIN
  8. AUBAGIO [Suspect]
     Active Substance: TERIFLUNOMIDE
     Indication: MULTIPLE SCLEROSIS
     Dosage: 14 MG, QD
     Route: 048
     Dates: start: 2017
  9. CALCITRIOL. [Concomitant]
     Active Substance: CALCITRIOL
  10. RIBOFLAVIN [Concomitant]
     Active Substance: RIBOFLAVIN
  11. IRON [Concomitant]
     Active Substance: IRON
  12. ALDACTONE [Concomitant]
     Active Substance: SPIRONOLACTONE
  13. VITAMIN B12 [Concomitant]
     Active Substance: CYANOCOBALAMIN
  14. PROTONIX [OMEPRAZOLE] [Concomitant]
     Active Substance: OMEPRAZOLE
  15. MAGNESIUM [Concomitant]
     Active Substance: MAGNESIUM
  16. CELEXA [CELECOXIB] [Concomitant]
     Active Substance: CELECOXIB
  17. TRILEPTAL [Concomitant]
     Active Substance: OXCARBAZEPINE
  18. REVATIO [Concomitant]
     Active Substance: SILDENAFIL CITRATE
  19. VITAMIN D3 [Concomitant]
     Active Substance: CHOLECALCIFEROL
  20. SYNTHROID [Concomitant]
     Active Substance: LEVOTHYROXINE SODIUM
  21. SINGULAIR [Concomitant]
     Active Substance: MONTELUKAST SODIUM
  22. XYZAL [Concomitant]
     Active Substance: LEVOCETIRIZINE DIHYDROCHLORIDE
  23. XANAX [Concomitant]
     Active Substance: ALPRAZOLAM
  24. TRACLEER [Concomitant]
     Active Substance: BOSENTAN
  25. COUMADIN [Concomitant]
     Active Substance: WARFARIN SODIUM
  26. CITRACAL 250+D [Concomitant]
  27. VITAMIN B12 [Concomitant]
     Active Substance: CYANOCOBALAMIN

REACTIONS (4)
  - Dyspnoea [Unknown]
  - Diarrhoea [Unknown]
  - Flushing [Unknown]
  - Nausea [Unknown]
